FAERS Safety Report 6998172-8 (Version None)
Quarter: 2010Q3

REPORT INFORMATION
  Report Type: 
  Country: None (occurrence: None)
  Receive Date: 20100920
  Receipt Date: 20091028
  Transmission Date: 20110219
  Serious: No
  Sender: FDA-Public Use
  Company Number: US-ASTRAZENECA-2009SE23212

PATIENT
  Age: 47 Year
  Sex: Female

DRUGS (4)
  1. SEROQUEL [Suspect]
     Indication: POST THROMBOTIC SYNDROME
     Dosage: 100MG-200MG-100MG FOR A TOTAL OF 400 MG A DAY
     Route: 048
     Dates: start: 20081001
  2. SEROQUEL [Suspect]
     Indication: INSOMNIA
     Dosage: 100MG-200MG-100MG FOR A TOTAL OF 400 MG A DAY
     Route: 048
     Dates: start: 20081001
  3. LEXAPRO [Concomitant]
  4. MULTI-VITAMIN [Concomitant]

REACTIONS (2)
  - THERAPEUTIC RESPONSE UNEXPECTED [None]
  - WEIGHT INCREASED [None]
